FAERS Safety Report 5487137-3 (Version None)
Quarter: 2007Q4

REPORT INFORMATION
  Report Type: 
  Country: None (occurrence: None)
  Receive Date: 20071016
  Receipt Date: 20071003
  Transmission Date: 20080405
  Serious: Yes (Hospitalization, Other)
  Sender: FDA-Public Use
  Company Number: US-ELI_LILLY_AND_COMPANY-US200710001377

PATIENT
  Sex: Female

DRUGS (5)
  1. FORTEO [Suspect]
     Indication: OSTEOPOROSIS
     Dosage: UNK, UNK
     Dates: start: 20070503
  2. CALCIUM [Concomitant]
     Indication: SUPPLEMENTATION THERAPY
  3. COUMADIN [Concomitant]
     Indication: CARDIAC DISORDER
     Dosage: 5 MG, DAILY (1/D)
  4. PLAVIX [Concomitant]
     Indication: CARDIAC DISORDER
     Dosage: 75 MG, DAILY (1/D)
  5. SOTALOL HYDROCHLORIDE [Concomitant]
     Indication: CARDIAC DISORDER

REACTIONS (1)
  - TRANSIENT ISCHAEMIC ATTACK [None]
